FAERS Safety Report 6099640-6 (Version None)
Quarter: 2009Q1

REPORT INFORMATION
  Report Type: 
  Country: None (occurrence: None)
  Receive Date: 20090303
  Receipt Date: 20090129
  Transmission Date: 20090719
  Serious: No
  Sender: FDA-Public Use
  Company Number: US-BAYER-200812550BCC

PATIENT
  Age: 73 Year
  Sex: Male
  Weight: 98 kg

DRUGS (6)
  1. ALEVE [Suspect]
     Indication: JOINT STIFFNESS
     Dosage: TOTAL DAILY DOSE: 220 MG  UNIT DOSE: 220 MG
     Dates: start: 20080901
  2. LISINOPRIL [Concomitant]
     Dates: start: 19850101
  3. LOVASTATIN [Concomitant]
     Dates: start: 19850101
  4. COLCHICINE [Concomitant]
     Route: 065
  5. ALLOPURINOL [Concomitant]
     Route: 065
  6. ASPIRIN [Concomitant]
     Dates: start: 19850101

REACTIONS (1)
  - POLYURIA [None]
